FAERS Safety Report 21093331 (Version 1)
Quarter: 2022Q3

REPORT INFORMATION
  Report Type: Spontaneous
  Country: FR (occurrence: FR)
  Receive Date: 20220718
  Receipt Date: 20220718
  Transmission Date: 20221027
  Serious: Yes (Hospitalization, Other)
  Sender: FDA-Public Use
  Company Number: None

PATIENT
  Age: 47 Year
  Sex: Male

DRUGS (6)
  1. ALLOPURINOL [Suspect]
     Active Substance: ALLOPURINOL
     Indication: Gout
     Route: 065
  2. COLCHICINE [Concomitant]
     Active Substance: COLCHICINE
     Indication: Gout
     Route: 065
  3. KETOPROFEN [Concomitant]
     Active Substance: KETOPROFEN
     Indication: Gout
     Route: 065
  4. OMEPRAZOLE [Concomitant]
     Active Substance: OMEPRAZOLE
     Indication: Gout
     Route: 065
  5. ACETAMINOPHEN [Concomitant]
     Active Substance: ACETAMINOPHEN
     Indication: Gout
     Route: 065
  6. CEFTRIAXONE [Concomitant]
     Active Substance: CEFTRIAXONE
     Indication: Product used for unknown indication
     Route: 065
     Dates: start: 20210701, end: 20210708

REACTIONS (3)
  - Vasculitis necrotising [Recovering/Resolving]
  - Renal vasculitis [Recovering/Resolving]
  - Acute kidney injury [Recovering/Resolving]
